FAERS Safety Report 5677903-3 (Version None)
Quarter: 2008Q1

REPORT INFORMATION
  Report Type: 
  Country: None (occurrence: None)
  Receive Date: 20080319
  Receipt Date: 20080312
  Transmission Date: 20080703
  Serious: Yes (Death)
  Sender: FDA-Public Use
  Company Number: MSER20070024

PATIENT
  Age: 27 Year
  Sex: Male
  Weight: 156.0374 kg

DRUGS (9)
  1. MORPHINE SULFATE [Suspect]
     Indication: BACK PAIN
     Dates: end: 20071101
  2. MORPHINE SULFATE [Suspect]
     Indication: HEADACHE
     Dates: end: 20071101
  3. MORPHINE SULFATE [Suspect]
     Indication: BACK PAIN
     Dates: end: 20071101
  4. MORPHINE SULFATE [Suspect]
     Indication: HEADACHE
     Dates: end: 20071101
  5. NORCO [Suspect]
     Indication: BACK PAIN
     Dosage: **OFF/ON, UP TO 4 TIMES A DAY, PER ORAL
     Route: 048
     Dates: start: 20010101, end: 20071123
  6. NORCO [Suspect]
     Indication: HEADACHE
     Dosage: **OFF/ON, UP TO 4 TIMES A DAY, PER ORAL
     Route: 048
     Dates: start: 20010101, end: 20071123
  7. XANAX [Suspect]
     Dates: end: 20071101
  8. KLONOPIN [Suspect]
     Dates: end: 20071101
  9. ANTIHYPERENSIVE MEDICATIONS [Concomitant]

REACTIONS (12)
  - CARDIOMEGALY [None]
  - CONVULSION [None]
  - DEPRESSED LEVEL OF CONSCIOUSNESS [None]
  - DRUG SCREEN POSITIVE [None]
  - FOAMING AT MOUTH [None]
  - HEADACHE [None]
  - HYPERTENSIVE HEART DISEASE [None]
  - NECK PAIN [None]
  - PAPILLARY MUSCLE DISORDER [None]
  - PERIPHERAL COLDNESS [None]
  - SNORING [None]
  - VENTRICULAR HYPERTROPHY [None]
